FAERS Safety Report 11788932 (Version 1)
Quarter: 2015Q4

REPORT INFORMATION
  Report Type: Spontaneous
  Country: BR (occurrence: BR)
  Receive Date: 20151201
  Receipt Date: 20151201
  Transmission Date: 20160305
  Serious: Yes (Other)
  Sender: FDA-Public Use
  Company Number: BR-ACTAVIS-2015-18387

PATIENT
  Age: 23 Year
  Sex: Female

DRUGS (1)
  1. PHENYTOIN (AMALLC) [Suspect]
     Active Substance: PHENYTOIN
     Indication: EPILEPSY
     Dosage: 200 MG, DAILY
     Route: 065

REACTIONS (1)
  - Periodontal disease [Recovered/Resolved]
